FAERS Safety Report 12418267 (Version 2)
Quarter: 2016Q2

REPORT INFORMATION
  Report Type: Spontaneous
  Country: US (occurrence: US)
  Receive Date: 20160531
  Receipt Date: 20160627
  Transmission Date: 20160815
  Serious: No
  Sender: FDA-Public Use
  Company Number: US-PFIZER INC-2016249898

PATIENT
  Age: 27 Year
  Sex: Female
  Weight: 56.7 kg

DRUGS (1)
  1. ALAVERT ALLERGY [Suspect]
     Active Substance: LORATADINE
     Indication: HYPERSENSITIVITY
     Dosage: 1 DF, 1X/DAY (ONLY TAKES THE PRODUCT AS NEEDED FOR ALLERGIES)
     Dates: start: 20160409, end: 20160413

REACTIONS (2)
  - Urine analysis abnormal [Unknown]
  - Condition aggravated [Unknown]

NARRATIVE: CASE EVENT DATE: 20160412
